FAERS Safety Report 18236970 (Version 1)
Quarter: 2020Q3

REPORT INFORMATION
  Report Type: Other
  Country: HR (occurrence: HR)
  Receive Date: 20200907
  Receipt Date: 20200907
  Transmission Date: 20201103
  Serious: Yes (Other)
  Sender: FDA-Public Use
  Company Number: HR-APOTEX-2020AP017260

PATIENT
  Sex: Male

DRUGS (1)
  1. SEROXAT FILM?COATED TABLET [Suspect]
     Active Substance: PAROXETINE HYDROCHLORIDE
     Indication: PRODUCT USED FOR UNKNOWN INDICATION
     Dosage: 600 MG, QD
     Route: 048
     Dates: start: 20200712, end: 20200712

REACTIONS (5)
  - Restlessness [Unknown]
  - Agitation [Unknown]
  - Intentional overdose [Unknown]
  - Nausea [Unknown]
  - Suicide attempt [Unknown]

NARRATIVE: CASE EVENT DATE: 20200712
